FAERS Safety Report 8040686-6 (Version None)
Quarter: 2012Q1

REPORT INFORMATION
  Report Type: 
  Country: None (occurrence: None)
  Receive Date: 20120111
  Receipt Date: 20111229
  Transmission Date: 20120608
  Serious: No
  Sender: FDA-Public Use
  Company Number: US-AMGEN-USASP2011060249

PATIENT
  Age: 59 Year
  Sex: Female
  Weight: 86.168 kg

DRUGS (3)
  1. METHOTREXATE [Concomitant]
     Dosage: UNK
  2. FOLIC ACID [Concomitant]
     Dosage: UNK
  3. ENBREL [Suspect]
     Indication: RHEUMATOID ARTHRITIS
     Dosage: 25 MG, 2 TIMES/WK
     Dates: start: 20031201

REACTIONS (5)
  - DYSPNOEA [None]
  - REACTION TO PRESERVATIVES [None]
  - ARTHRALGIA [None]
  - INJECTION SITE PAIN [None]
  - JOINT SWELLING [None]
